FAERS Safety Report 4331818-1 (Version None)
Quarter: 2004Q2

REPORT INFORMATION
  Report Type: 
  Country: None (occurrence: None)
  Receive Date: 20040405
  Receipt Date: 20031006
  Transmission Date: 20050107
  Serious: No
  Sender: FDA-Public Use
  Company Number: US-GLAXOSMITHKLINE-A0429004A

PATIENT
  Age: 63 Year
  Sex: Female

DRUGS (7)
  1. FLOVENT [Suspect]
     Dosage: 2PUFF TWICE PER DAY
     Route: 055
     Dates: start: 20010101, end: 20010101
  2. SEREVENT [Suspect]
     Dosage: 1PUFF TWICE PER DAY
     Route: 055
     Dates: start: 20030801
  3. SINGULAIR [Concomitant]
  4. VIOXX [Concomitant]
  5. ALBUTEROL [Concomitant]
  6. AUGMENTIN [Concomitant]
  7. METHYLPREDNISOLONE [Concomitant]

REACTIONS (5)
  - APHONIA [None]
  - ARTHRALGIA [None]
  - CHRONIC OBSTRUCTIVE AIRWAYS DISEASE EXACERBATED [None]
  - EYE DISCHARGE [None]
  - RHINORRHOEA [None]
